FAERS Safety Report 7510466-6 (Version None)
Quarter: 2011Q2

REPORT INFORMATION
  Report Type: 
  Country: None (occurrence: None)
  Receive Date: 20110527
  Receipt Date: 20110523
  Transmission Date: 20111010
  Serious: Yes (Hospitalization, Other)
  Sender: FDA-Public Use
  Company Number: US-PFIZER INC-2011015322

PATIENT
  Sex: Male

DRUGS (1)
  1. CHANTIX [Suspect]
     Indication: SMOKING CESSATION THERAPY
     Dosage: 1 MG, UNK
     Dates: start: 20081130, end: 20090115

REACTIONS (9)
  - HOSTILITY [None]
  - ARTHRALGIA [None]
  - PAIN [None]
  - ANXIETY [None]
  - LOSS OF CONSCIOUSNESS [None]
  - DEPRESSION [None]
  - ROAD TRAFFIC ACCIDENT [None]
  - SUICIDE ATTEMPT [None]
  - PLASTIC SURGERY TO THE FACE [None]
